FAERS Safety Report 15507348 (Version 2)
Quarter: 2018Q4

REPORT INFORMATION
  Report Type: Spontaneous
  Country: US (occurrence: US)
  Receive Date: 20181016
  Receipt Date: 20181214
  Transmission Date: 20190205
  Serious: Yes (Other)
  Sender: FDA-Public Use
  Company Number: US-009507513-1810USA006293

PATIENT
  Age: 15 Year
  Sex: Male

DRUGS (1)
  1. NOXAFIL [Suspect]
     Active Substance: POSACONAZOLE
     Indication: ANTIFUNGAL PROPHYLAXIS
     Dosage: UNK
     Route: 048

REACTIONS (4)
  - Hyperadrenalism [Recovered/Resolved]
  - Hypertensive crisis [Recovered/Resolved]
  - Enzyme inhibition [Unknown]
  - Hypokalaemia [Recovered/Resolved]
